FAERS Safety Report 26068343 (Version 2)
Quarter: 2025Q4

REPORT INFORMATION
  Report Type: Report from Study
  Country: CN (occurrence: CN)
  Receive Date: 20251120
  Receipt Date: 20251217
  Transmission Date: 20260117
  Serious: Yes (Other)
  Sender: ROCHE
  Company Number: CN-ROCHE-10000239817

PATIENT
  Age: 59 Year
  Sex: Male

DRUGS (23)
  1. RITUXIMAB [Suspect]
     Active Substance: RITUXIMAB
     Indication: Diffuse large B-cell lymphoma
     Route: 041
     Dates: start: 20240306, end: 20240306
  2. POLATUZUMAB VEDOTIN [Suspect]
     Active Substance: POLATUZUMAB VEDOTIN
     Indication: Diffuse large B-cell lymphoma
     Route: 041
     Dates: start: 20240307, end: 20240307
  3. POLATUZUMAB VEDOTIN [Suspect]
     Active Substance: POLATUZUMAB VEDOTIN
     Route: 041
     Dates: start: 20240513, end: 20240513
  4. CYCLOPHOSPHAMIDE [Suspect]
     Active Substance: CYCLOPHOSPHAMIDE
     Indication: Diffuse large B-cell lymphoma
     Route: 041
     Dates: start: 20240513, end: 20240513
  5. CYCLOPHOSPHAMIDE [Suspect]
     Active Substance: CYCLOPHOSPHAMIDE
     Route: 041
     Dates: start: 20240307, end: 20240307
  6. PREDNISONE [Suspect]
     Active Substance: PREDNISONE
     Indication: Diffuse large B-cell lymphoma
     Route: 048
     Dates: start: 20240513, end: 20240517
  7. PREDNISONE [Suspect]
     Active Substance: PREDNISONE
     Route: 048
     Dates: start: 20240307, end: 20240311
  8. EPIRUBICIN [Suspect]
     Active Substance: EPIRUBICIN
     Indication: Diffuse large B-cell lymphoma
     Route: 041
     Dates: start: 20240513, end: 20240513
  9. EPIRUBICIN [Suspect]
     Active Substance: EPIRUBICIN
     Route: 041
     Dates: start: 20240307, end: 20240307
  10. LENALIDOMIDE [Suspect]
     Active Substance: LENALIDOMIDE
     Indication: Diffuse large B-cell lymphoma
     Route: 048
     Dates: start: 20240513, end: 20240513
  11. RITUXIMAB [Suspect]
     Active Substance: RITUXIMAB
     Indication: Diffuse large B-cell lymphoma
     Route: 041
     Dates: start: 20240512, end: 20240512
  12. IRBESARTAN AND HYDROCHLOROTHIAZIDE [Concomitant]
     Active Substance: HYDROCHLOROTHIAZIDE\IRBESARTAN
     Route: 048
  13. Levoamlodipine besylate [Concomitant]
     Route: 048
  14. LEUCOGEN [Concomitant]
     Active Substance: LEUCOGEN
     Route: 048
     Dates: start: 20240309
  15. ENTECAVIR [Concomitant]
     Active Substance: ENTECAVIR
     Route: 048
     Dates: start: 20240305
  16. LEVOFLOXACIN [Concomitant]
     Active Substance: LEVOFLOXACIN
  17. Esomeprazole magnesium enteric coated capsules [Concomitant]
     Dosage: 2 CAPSULE
     Route: 048
     Dates: start: 20240512, end: 20240516
  18. Omeprazole Enteric-coated Capsules [Concomitant]
     Dosage: 2 CAPSULE
     Route: 048
     Dates: start: 20240612, end: 20240613
  19. Methylprednisolone Sodium Succinate  for Injection [Concomitant]
     Route: 041
     Dates: start: 20240612
  20. PROMETHAZINE [Concomitant]
     Active Substance: PROMETHAZINE HYDROCHLORIDE
     Route: 030
     Dates: start: 20240613, end: 20240614
  21. SODIUM BICARBONATE [Concomitant]
     Active Substance: SODIUM BICARBONATE
     Route: 041
     Dates: start: 20240613, end: 20240614
  22. Palonosetron hydrochloride capsules [Concomitant]
     Route: 048
     Dates: start: 20240612, end: 20240612
  23. Compound paracetamol tablets [Concomitant]
     Route: 048
     Dates: start: 20240612, end: 20240613

REACTIONS (4)
  - Hypoproteinaemia [Not Recovered/Not Resolved]
  - Hypokalaemia [Recovered/Resolved]
  - Hypoalbuminaemia [Recovered/Resolved]
  - Anaemia [Not Recovered/Not Resolved]

NARRATIVE: CASE EVENT DATE: 20240609
